FAERS Safety Report 25149018 (Version 2)
Quarter: 2025Q2

REPORT INFORMATION
  Report Type: Spontaneous
  Country: QA (occurrence: QA)
  Receive Date: 20250402
  Receipt Date: 20250430
  Transmission Date: 20250717
  Serious: Yes (Other)
  Sender: RANBAXY
  Company Number: QA-SUN PHARMACEUTICAL INDUSTRIES LTD-2025R1-501298

PATIENT
  Age: 27 Year
  Sex: Male

DRUGS (1)
  1. OXYMETAZOLINE [Suspect]
     Active Substance: OXYMETAZOLINE
     Indication: Rhinitis
     Route: 045

REACTIONS (3)
  - Overdose [Unknown]
  - Acute myocardial infarction [Recovered/Resolved]
  - Arteriospasm coronary [Recovered/Resolved]
